FAERS Safety Report 9031618 (Version 2)
Quarter: 2013Q2

REPORT INFORMATION
  Report Type: Spontaneous
  Country: US (occurrence: US)
  Receive Date: 20130124
  Receipt Date: 20130422
  Transmission Date: 20140414
  Serious: Yes (Hospitalization)
  Sender: FDA-Public Use
  Company Number: US-ASTRAZENECA-2013SE02931

PATIENT
  Age: 473 Day
  Sex: Female

DRUGS (3)
  1. SYNAGIS [Suspect]
     Route: 030
     Dates: start: 20121112, end: 20121212
  2. SYNAGIS [Suspect]
     Dosage: ONCE A MONTH
     Route: 030
     Dates: start: 201211, end: 201302
  3. ALBUTEROL [Concomitant]
     Dosage: AS NEEDED

REACTIONS (5)
  - Respiratory syncytial virus infection [Unknown]
  - Hypophagia [Unknown]
  - Listless [Unknown]
  - Rotavirus infection [Unknown]
  - Pyrexia [Unknown]
